FAERS Safety Report 19377951 (Version 2)
Quarter: 2021Q2

REPORT INFORMATION
  Report Type: Report from Study
  Country: US (occurrence: US)
  Receive Date: 20210604
  Receipt Date: 20210609
  Transmission Date: 20210717
  Serious: No
  Sender: FDA-Public Use
  Company Number: NVSC2021US121627

PATIENT
  Age: 75 Year
  Sex: Female

DRUGS (1)
  1. GLEEVEC [Suspect]
     Active Substance: IMATINIB MESYLATE
     Indication: CHRONIC MYELOID LEUKAEMIA (IN REMISSION)
     Dosage: 400 MG, QD
     Route: 048
     Dates: start: 20180822, end: 20210528

REACTIONS (3)
  - Nervousness [Recovered/Resolved]
  - Chest discomfort [Recovered/Resolved]
  - Extra dose administered [Unknown]

NARRATIVE: CASE EVENT DATE: 20210528
